FAERS Safety Report 10231627 (Version 1)
Quarter: 2014Q2

REPORT INFORMATION
  Report Type: Spontaneous
  Country: GB (occurrence: GB)
  Receive Date: 20140611
  Receipt Date: 20140611
  Transmission Date: 20141212
  Serious: Yes (Hospitalization)
  Sender: FDA-Public Use
  Company Number: GB-TEVA-486814ISR

PATIENT
  Age: 35 Year
  Sex: Male
  Weight: 76.2 kg

DRUGS (2)
  1. SILDENAFIL [Suspect]
     Dates: start: 20140523
  2. HYDROXOCOBALAMIN [Concomitant]
     Dates: start: 20140328, end: 20140423

REACTIONS (2)
  - Chest discomfort [Recovered/Resolved]
  - Palpitations [Recovered/Resolved]
